FAERS Safety Report 19927337 (Version 1)
Quarter: 2021Q4

REPORT INFORMATION
  Report Type: Spontaneous
  Country: US (occurrence: US)
  Receive Date: 20211007
  Receipt Date: 20211007
  Transmission Date: 20220303
  Serious: No
  Sender: FDA-Public Use
  Company Number: US-ELI_LILLY_AND_COMPANY-US202110001652

PATIENT
  Age: 57 Year
  Sex: Female

DRUGS (4)
  1. EMGALITY [Interacting]
     Active Substance: GALCANEZUMAB-GNLM
     Indication: Migraine
     Dosage: 120 MG, UNKNOWN
     Route: 065
     Dates: start: 20210325
  2. EMGALITY [Interacting]
     Active Substance: GALCANEZUMAB-GNLM
     Dosage: 120 MG, UNKNOWN
     Route: 065
  3. SEROQUEL [Interacting]
     Active Substance: QUETIAPINE FUMARATE
     Indication: Anxiety
     Dosage: 50 MG, UNKNOWN
     Route: 065
  4. PFIZER-BIONTECH COVID-19 VACCINE [Interacting]
     Active Substance: TOZINAMERAN
     Indication: Immunisation
     Dosage: UNK, UNKNOWN
     Route: 065

REACTIONS (3)
  - Anxiety [Unknown]
  - Mood altered [Unknown]
  - Drug interaction [Unknown]

NARRATIVE: CASE EVENT DATE: 20210501
